FAERS Safety Report 8650727 (Version 2)
Quarter: 2012Q4

REPORT INFORMATION
  Report Type: 
  Country: GB (occurrence: GB)
  Receive Date: 20120705
  Receipt Date: 20120910
  Transmission Date: 20130627
  Serious: Yes (Life-Threatening, Hospitalization, Other)
  Sender: FDA-Public Use
  Company Number: GB-GLAXOSMITHKLINE-B0811295A

PATIENT
  Age: 72 None
  Sex: Male
  Weight: 52.5 kg

DRUGS (8)
  1. VOTRIENT [Suspect]
     Indication: RENAL CELL CARCINOMA
     Route: 048
     Dates: start: 20120419, end: 20120523
  2. ASPIRIN [Concomitant]
     Dosage: 75MG Per day
     Route: 048
  3. DOCUSATE SODIUM [Concomitant]
     Dosage: 100MG Three times per day
     Route: 048
  4. HUMALOG [Concomitant]
     Dosage: 30UD per day
     Route: 058
  5. LANSOPRAZOLE [Concomitant]
     Dosage: 30MG Per day
     Route: 048
  6. SENNA [Concomitant]
     Dosage: 15MG Per day
     Route: 048
  7. RAMIPRIL [Concomitant]
     Route: 048
     Dates: end: 20120611
  8. AMLODIPINE [Concomitant]
     Route: 048
     Dates: end: 20120611

REACTIONS (13)
  - Hepatic enzyme increased [Recovering/Resolving]
  - Renal failure [Recovering/Resolving]
  - Jaundice [Unknown]
  - Alanine aminotransferase increased [Unknown]
  - Nausea [Unknown]
  - Decreased appetite [Unknown]
  - Lethargy [Unknown]
  - Vomiting [Unknown]
  - Mobility decreased [Unknown]
  - Blood albumin decreased [Unknown]
  - Blood alkaline phosphatase increased [Unknown]
  - Blood creatinine increased [Unknown]
  - Blood urea increased [Unknown]
